FAERS Safety Report 13377648 (Version 1)
Quarter: 2017Q1

REPORT INFORMATION
  Report Type: Report from Study
  Country: IT (occurrence: IT)
  Receive Date: 20170328
  Receipt Date: 20170328
  Transmission Date: 20170429
  Serious: Yes (Other)
  Sender: FDA-Public Use
  Company Number: IT-TEVA-746717ISR

PATIENT
  Sex: Male

DRUGS (5)
  1. PHENYLEPHRINE, TROPICAMIDE [Concomitant]
     Dosage: TWO DROPS OF 0.5% TROPICAMIDE AND 10% PHENYLEPHRINE REPEATED AFTER 10MINUTES IN MORNING OF SURGERY
     Route: 065
  2. EPINEPHRINE. [Concomitant]
     Active Substance: EPINEPHRINE
     Dosage: 1:4000 DILUTED WITH BSS
     Route: 031
  3. TAMSULOSIN [Suspect]
     Active Substance: TAMSULOSIN
     Route: 065
  4. HYALURONIC ACID, CHONDROITIN SULFATE [Concomitant]
     Dosage: 3.0%-4.0%
     Route: 065
  5. LIDOCAINE. [Concomitant]
     Active Substance: LIDOCAINE
     Dosage: 2%
     Route: 065

REACTIONS (2)
  - Angle closure glaucoma [Unknown]
  - Floppy iris syndrome [Recovering/Resolving]
